APPROVED DRUG PRODUCT: OPHTHAINE
Active Ingredient: PROPARACAINE HYDROCHLORIDE
Strength: 0.5% **Federal Register determination that product was not discontinued or withdrawn for safety or effectiveness reasons**
Dosage Form/Route: SOLUTION/DROPS;OPHTHALMIC
Application: N008883 | Product #001
Applicant: APOTHECON INC DIV BRISTOL MYERS SQUIBB
Approved: Approved Prior to Jan 1, 1982 | RLD: Yes | RS: No | Type: DISCN